FAERS Safety Report 4753173-5 (Version None)
Quarter: 2005Q3

REPORT INFORMATION
  Report Type: 
  Country: None (occurrence: None)
  Receive Date: 20050823
  Receipt Date: 20050815
  Transmission Date: 20060218
  Serious: Yes (Other)
  Sender: FDA-Public Use
  Company Number: 200513309BCC

PATIENT
  Sex: Female

DRUGS (2)
  1. GENUINE BAYER CAPLETS (ACETYLSALICYLIC ACID) [Suspect]
     Indication: HEADACHE
     Dosage: ORAL
     Route: 048
  2. PREVACID [Concomitant]

REACTIONS (3)
  - COLONIC POLYP [None]
  - GASTRIC ULCER [None]
  - GASTROOESOPHAGEAL REFLUX DISEASE [None]
